FAERS Safety Report 6336822-X (Version None)
Quarter: 2009Q3

REPORT INFORMATION
  Report Type: 
  Country: None (occurrence: None)
  Receive Date: 20090831
  Receipt Date: 20090831
  Transmission Date: 20100115
  Serious: Yes (Other)
  Sender: FDA-Public Use
  Company Number: None

PATIENT
  Age: 57 Year
  Sex: Female
  Weight: 71.6683 kg

DRUGS (1)
  1. LEVAQUIN [Suspect]
     Indication: KIDNEY INFECTION
     Dosage: 1 TABLET EVERY DAY PO
     Route: 048
     Dates: start: 20090825, end: 20090827

REACTIONS (6)
  - ASTHENIA [None]
  - BURNING SENSATION [None]
  - FATIGUE [None]
  - GAIT DISTURBANCE [None]
  - NECK PAIN [None]
  - SENSORY DISTURBANCE [None]
